FAERS Safety Report 25012434 (Version 1)
Quarter: 2025Q1

REPORT INFORMATION
  Report Type: Spontaneous
  Country: CN (occurrence: CN)
  Receive Date: 20250226
  Receipt Date: 20250226
  Transmission Date: 20250408
  Serious: Yes (Hospitalization)
  Sender: BOEHRINGER INGELHEIM
  Company Number: CN-BoehringerIngelheim-2025-BI-011127

PATIENT
  Age: 3 Year
  Sex: Female
  Weight: 12.500 kg

DRUGS (3)
  1. ATROVENT [Suspect]
     Active Substance: IPRATROPIUM BROMIDE
     Indication: Pneumonia
     Dates: start: 20210629, end: 20210630
  2. PULMICORT RESPULES [Suspect]
     Active Substance: BUDESONIDE
     Indication: Pneumonia
     Dates: start: 20210629, end: 20210630
  3. BRICANYL [Suspect]
     Active Substance: TERBUTALINE SULFATE
     Indication: Pneumonia
     Dates: start: 20210629, end: 20210630

REACTIONS (3)
  - Flushing [Recovering/Resolving]
  - Rash [Recovering/Resolving]
  - Localised oedema [Recovering/Resolving]

NARRATIVE: CASE EVENT DATE: 20210630
